FAERS Safety Report 9526095 (Version 2)
Quarter: 2013Q3

REPORT INFORMATION
  Report Type: Report from Study
  Country: US (occurrence: US)
  Receive Date: 20130916
  Receipt Date: 20130916
  Transmission Date: 20140515
  Serious: Yes (Hospitalization)
  Sender: FDA-Public Use
  Company Number: US-ROCHE-1199111

PATIENT
  Age: 81 Year
  Sex: Female
  Weight: 55.39 kg

DRUGS (3)
  1. XELODA [Suspect]
     Indication: PANCREATIC CARCINOMA METASTATIC
     Route: 048
     Dates: start: 20130201, end: 20130301
  2. XELODA [Suspect]
     Route: 048
     Dates: start: 20130401
  3. GEMZAR [Concomitant]
     Indication: PANCREATIC CARCINOMA METASTATIC
     Route: 042

REACTIONS (13)
  - Platelet count decreased [Unknown]
  - Prothrombin time prolonged [Unknown]
  - Stomatitis [Recovered/Resolved]
  - Anorectal discomfort [Not Recovered/Not Resolved]
  - Lip haemorrhage [Not Recovered/Not Resolved]
  - Rash erythematous [Not Recovered/Not Resolved]
  - Skin ulcer [Not Recovered/Not Resolved]
  - Decreased appetite [Not Recovered/Not Resolved]
  - Stomatitis [Not Recovered/Not Resolved]
  - Lip swelling [Not Recovered/Not Resolved]
  - Local swelling [Not Recovered/Not Resolved]
  - Erythema [Not Recovered/Not Resolved]
  - Pain in extremity [Not Recovered/Not Resolved]
